FAERS Safety Report 8540485-2 (Version None)
Quarter: 2012Q3

REPORT INFORMATION
  Report Type: 
  Country: None (occurrence: None)
  Receive Date: 20120726
  Receipt Date: 20110729
  Transmission Date: 20120928
  Serious: No
  Sender: FDA-Public Use
  Company Number: US-ASTRAZENECA-2011SE45745

PATIENT
  Age: 43 Year

DRUGS (2)
  1. SEROQUEL XR [Suspect]
     Dosage: 400 MG AND 150 MG AT BED TIME. TOTAL DAILY DOSE-550 MG
     Route: 048
  2. SEROQUEL XR [Suspect]
     Route: 048

REACTIONS (1)
  - DRUG INTOLERANCE [None]
